FAERS Safety Report 5564961-X (Version None)
Quarter: 2007Q4

REPORT INFORMATION
  Report Type: 
  Country: None (occurrence: None)
  Receive Date: 20071218
  Receipt Date: 20071207
  Transmission Date: 20080405
  Serious: Yes (Hospitalization)
  Sender: FDA-Public Use
  Company Number: B0499778A

PATIENT
  Age: 37 Year
  Sex: Female

DRUGS (2)
  1. ARIXTRA [Suspect]
     Indication: PHLEBITIS
     Dosage: 7.5MG PER DAY
     Route: 058
  2. CONTRACEPTIVE [Suspect]
     Route: 058

REACTIONS (3)
  - CHEST PAIN [None]
  - DYSPNOEA [None]
  - PULMONARY EMBOLISM [None]
